FAERS Safety Report 11098299 (Version 3)
Quarter: 2015Q3

REPORT INFORMATION
  Report Type: Spontaneous
  Country: JP (occurrence: JP)
  Receive Date: 20150507
  Receipt Date: 20150729
  Transmission Date: 20151125
  Serious: Yes (Other)
  Sender: FDA-Public Use
  Company Number: PHJP2015JP007186

PATIENT
  Age: 58 Year
  Sex: Female

DRUGS (1)
  1. AFINITOR [Suspect]
     Active Substance: EVEROLIMUS
     Indication: BREAST CANCER METASTATIC
     Dosage: UNK
     Route: 048

REACTIONS (6)
  - Granuloma [Unknown]
  - Organising pneumonia [Unknown]
  - Lung infiltration [Unknown]
  - Pulmonary artery wall hypertrophy [Unknown]
  - Fibrin abnormal [Unknown]
  - Interstitial lung disease [Unknown]
